FAERS Safety Report 4412847-6 (Version None)
Quarter: 2004Q3

REPORT INFORMATION
  Report Type: 
  Country: None (occurrence: None)
  Receive Date: 20040730
  Receipt Date: 20040730
  Transmission Date: 20050211
  Serious: Yes (Death)
  Sender: FDA-Public Use
  Company Number: None

PATIENT
  Age: 43 Year
  Sex: Male
  Weight: 90.7194 kg

DRUGS (2)
  1. CLOZARIL [Suspect]
     Indication: SCHIZOPHRENIA
     Dosage: 600 MG QHS
  2. BENADRYL [Suspect]
     Indication: HYPERTENSION
     Dosage: 50 MG QHS

REACTIONS (3)
  - ACCIDENT [None]
  - DYSPNOEA [None]
  - THERAPEUTIC AGENT TOXICITY [None]
